FAERS Safety Report 5720746-2 (Version None)
Quarter: 2008Q1

REPORT INFORMATION
  Report Type: 
  Country: None (occurrence: None)
  Receive Date: 20080303
  Receipt Date: 20080422
  Transmission Date: 20080703
  Serious: Yes (Other)
  Sender: FDA-Public Use
  Company Number: US-BRACCO-000571

PATIENT
  Age: 66 Year
  Sex: Female

DRUGS (7)
  1. ISOVUE-300 [Suspect]
     Indication: COMPUTERISED TOMOGRAM
     Route: 042
     Dates: start: 20070716, end: 20070716
  2. ISOVUE-300 [Suspect]
     Indication: ISCHAEMIA
     Route: 042
     Dates: start: 20070716, end: 20070716
  3. ISOVUE-300 [Suspect]
     Indication: COMPUTERISED TOMOGRAM ABDOMEN
     Route: 042
     Dates: start: 20070612, end: 20070612
  4. BENADRYL [Concomitant]
     Dosage: THREE DAYS PRIOR TOOK 50 MG QD
     Route: 065
  5. BENADRYL [Concomitant]
     Dosage: THREE DAYS PRIOR TOOK 50 MG QD
     Route: 065
  6. PREDNISONE                         /00044701/ [Concomitant]
     Dosage: PRE-MEDICATED 3 DAYS PRIOR TO SCAN.
     Route: 065
  7. LOPRESSOR [Concomitant]
     Route: 065
     Dates: start: 20070613

REACTIONS (2)
  - HYPERTENSION [None]
  - NEPHROPATHY TOXIC [None]
